FAERS Safety Report 9483304 (Version 2)
Quarter: 2013Q3

REPORT INFORMATION
  Report Type: Spontaneous
  Country: CA (occurrence: CA)
  Receive Date: 20130828
  Receipt Date: 20130828
  Transmission Date: 20140515
  Serious: Yes (Life-Threatening, Other)
  Sender: FDA-Public Use
  Company Number: CA-AMGEN-KDL250157

PATIENT
  Sex: Male
  Weight: 98 kg

DRUGS (3)
  1. ENBREL [Suspect]
     Indication: RHEUMATOID ARTHRITIS
     Dosage: 25 MG, 2 TIMES/WK
     Route: 058
     Dates: start: 20070615
  2. ANTIHYPERTENSIVE MEDICATION NOS [Concomitant]
  3. UNSPECIFIED ANTIDIABETIC AGENT [Concomitant]

REACTIONS (2)
  - Prostate infection [Recovering/Resolving]
  - Gastrointestinal infection [Recovering/Resolving]
